FAERS Safety Report 21878710 (Version 1)
Quarter: 2023Q1

REPORT INFORMATION
  Report Type: Report from Study
  Country: MX (occurrence: MX)
  Receive Date: 20230118
  Receipt Date: 20230118
  Transmission Date: 20230418
  Serious: Yes (Hospitalization)
  Sender: FDA-Public Use
  Company Number: MX-002147023-NVSC2023MX010626

PATIENT
  Sex: Male
  Weight: 70 kg

DRUGS (1)
  1. EXFORGE [Suspect]
     Active Substance: AMLODIPINE BESYLATE\VALSARTAN
     Indication: Blood pressure measurement
     Dosage: 1 DOSAGE FORM, QD, (320/5MG)
     Route: 048
     Dates: start: 202211

REACTIONS (4)
  - Influenza [Unknown]
  - Oxygen saturation decreased [Unknown]
  - Blood pressure decreased [Unknown]
  - Personality change [Unknown]
